FAERS Safety Report 4684604-7 (Version None)
Quarter: 2005Q2

REPORT INFORMATION
  Report Type: 
  Country: None (occurrence: None)
  Receive Date: 20050531
  Receipt Date: 20050215
  Transmission Date: 20051028
  Serious: Yes (Hospitalization, Other)
  Sender: FDA-Public Use
  Company Number: USA050290873

PATIENT
  Age: 32 Year
  Sex: Female

DRUGS (4)
  1. CYMBALTA [Suspect]
     Dosage: 60 MG
  2. ZYPREXA [Suspect]
  3. SEROQUEL [Concomitant]
  4. GEODON [Concomitant]

REACTIONS (14)
  - DISTURBANCE IN ATTENTION [None]
  - DIZZINESS [None]
  - DRUG INEFFECTIVE [None]
  - FEELING ABNORMAL [None]
  - HYPERAESTHESIA [None]
  - ILL-DEFINED DISORDER [None]
  - LOSS OF CONSCIOUSNESS [None]
  - MANIA [None]
  - PANIC REACTION [None]
  - SKIN LACERATION [None]
  - SKIN LESION [None]
  - THERMAL BURN [None]
  - VOMITING [None]
  - WEIGHT INCREASED [None]
